FAERS Safety Report 16137266 (Version 1)
Quarter: 2019Q1

REPORT INFORMATION
  Report Type: Spontaneous
  Country: US (occurrence: US)
  Receive Date: 20190330
  Receipt Date: 20190330
  Transmission Date: 20190418
  Serious: No
  Sender: FDA-Public Use
  Company Number: PHEH2019US013105

PATIENT
  Age: 38 Year
  Sex: Female

DRUGS (1)
  1. AFINITOR [Suspect]
     Active Substance: EVEROLIMUS
     Indication: BREAST CANCER
     Route: 065

REACTIONS (5)
  - Liver function test increased [Unknown]
  - Stomatitis [Recovered/Resolved]
  - Nausea [Recovering/Resolving]
  - Pain of skin [Unknown]
  - Musculoskeletal stiffness [Unknown]
